FAERS Safety Report 5464069-8 (Version None)
Quarter: 2007Q3

REPORT INFORMATION
  Report Type: 
  Country: None (occurrence: None)
  Receive Date: 20070921
  Receipt Date: 20070912
  Transmission Date: 20080115
  Serious: Yes (Life-Threatening)
  Sender: FDA-Public Use
  Company Number: NL-JNJFOC-20070903489

PATIENT
  Sex: Female

DRUGS (2)
  1. ZALDIAR [Suspect]
     Indication: DRUG USE FOR UNKNOWN INDICATION
     Route: 048
  2. GYNOMYK [Concomitant]
     Route: 065

REACTIONS (1)
  - HYPOGLYCAEMIA [None]
